FAERS Safety Report 15822031 (Version 1)
Quarter: 2019Q1

REPORT INFORMATION
  Report Type: Spontaneous
  Country: US (occurrence: US)
  Receive Date: 20190114
  Receipt Date: 20190114
  Transmission Date: 20190417
  Serious: No
  Sender: FDA-Public Use
  Company Number: US-PFIZER INC-2019009822

PATIENT
  Age: 61 Year
  Sex: Male
  Weight: 102.6 kg

DRUGS (1)
  1. VIAGRA [Suspect]
     Active Substance: SILDENAFIL CITRATE
     Indication: ERECTILE DYSFUNCTION
     Dosage: 100 MG, (ONE TABLET ) AS NEEDED
     Route: 048
     Dates: start: 2017

REACTIONS (3)
  - Dysuria [Unknown]
  - Nocturia [Unknown]
  - Urge incontinence [Unknown]

NARRATIVE: CASE EVENT DATE: 201811
